FAERS Safety Report 8548735-3 (Version None)
Quarter: 2012Q3

REPORT INFORMATION
  Report Type: 
  Country: None (occurrence: None)
  Receive Date: 20120730
  Receipt Date: 20120725
  Transmission Date: 20120928
  Serious: Yes (Other)
  Sender: FDA-Public Use
  Company Number: PHEH2012US013251

PATIENT
  Sex: Male
  Weight: 108 kg

DRUGS (2)
  1. GLEEVEC [Suspect]
     Indication: HYPEREOSINOPHILIC SYNDROME
  2. GLEEVEC [Suspect]
     Indication: EOSINOPHILIA
     Dosage: 400 MG DAILY
     Route: 048
     Dates: start: 20090611

REACTIONS (4)
  - CARDIAC FAILURE CONGESTIVE [None]
  - RENAL IMPAIRMENT [None]
  - FATIGUE [None]
  - CARDIAC VALVE DISEASE [None]
